FAERS Safety Report 20331861 (Version 1)
Quarter: 2022Q1

REPORT INFORMATION
  Report Type: Spontaneous
  Country: US (occurrence: None)
  Receive Date: 20220113
  Receipt Date: 20220113
  Transmission Date: 20220423
  Serious: Yes (Death, Hospitalization)
  Sender: FDA-Public Use
  Company Number: None

PATIENT
  Sex: Female
  Weight: 75.3 kg

DRUGS (2)
  1. CARBOPLATIN [Suspect]
     Active Substance: CARBOPLATIN
  2. ETOPOSIDE [Concomitant]

REACTIONS (17)
  - Arthralgia [None]
  - Pain in extremity [None]
  - Febrile neutropenia [None]
  - Pancytopenia [None]
  - Atrial fibrillation [None]
  - Acute pulmonary oedema [None]
  - Dyspnoea [None]
  - Asthenia [None]
  - Acute kidney injury [None]
  - Anaemia [None]
  - Hypercapnia [None]
  - Fatigue [None]
  - Cardiac failure [None]
  - Pulmonary embolism [None]
  - Malignant pleural effusion [None]
  - Staphylococcal infection [None]
  - Cardiomyopathy [None]

NARRATIVE: CASE EVENT DATE: 20211222
